FAERS Safety Report 18419629 (Version 1)
Quarter: 2020Q4

REPORT INFORMATION
  Report Type: Other
  Country: CA (occurrence: CA)
  Receive Date: 20201023
  Receipt Date: 20201023
  Transmission Date: 20210114
  Serious: Yes (Other)
  Sender: FDA-Public Use
  Company Number: CA-INTERCEPT-PM2020002104

PATIENT
  Sex: Female

DRUGS (4)
  1. URSODIOL. [Concomitant]
     Active Substance: URSODIOL
     Dosage: 1000 MG, QD
  2. ROFACT                             /00146901/ [Concomitant]
     Active Substance: RIFAMPIN
     Indication: PRURITUS
     Dosage: 150 MG, BID
  3. CHOLESTYRAMINE. [Concomitant]
     Active Substance: CHOLESTYRAMINE
     Indication: PRURITUS
  4. OCALIVA [Suspect]
     Active Substance: OBETICHOLIC ACID
     Indication: PRIMARY BILIARY CHOLANGITIS
     Dosage: 5 MG, QD
     Route: 048
     Dates: start: 20200418

REACTIONS (4)
  - Visual impairment [Unknown]
  - Umbilical hernia [Not Recovered/Not Resolved]
  - Hepatic pain [Unknown]
  - Nausea [Unknown]

NARRATIVE: CASE EVENT DATE: 2020
